FAERS Safety Report 6249889-4 (Version None)
Quarter: 2009Q2

REPORT INFORMATION
  Report Type: 
  Country: None (occurrence: None)
  Receive Date: 20090629
  Receipt Date: 20090619
  Transmission Date: 20091009
  Serious: Yes (Other)
  Sender: FDA-Public Use
  Company Number: US-MYLANLABS-2009S1010903

PATIENT
  Age: 44 Year
  Sex: Male
  Weight: 104.33 kg

DRUGS (7)
  1. FENTANYL TRANSDERMAL SYSTEM [Suspect]
     Indication: BACK PAIN
     Dosage: CHANGED PATCHES Q3D
     Route: 062
     Dates: start: 20090501, end: 20090605
  2. FENTANYL TRANSDERMAL SYSTEM [Suspect]
     Dosage: CHANGED PATCHES Q2D
     Route: 062
     Dates: start: 20090605, end: 20090612
  3. FENTANYL TRANSDERMAL SYSTEM [Suspect]
     Dosage: CHANGED PATCHES Q3D
     Route: 062
     Dates: start: 20090612
  4. OXYCODONE HCL [Concomitant]
     Indication: BREAKTHROUGH PAIN
     Route: 048
  5. PERCOCET [Concomitant]
     Indication: BREAKTHROUGH PAIN
     Route: 048
  6. EFFEXOR [Concomitant]
     Indication: BREAKTHROUGH PAIN
     Route: 048
  7. OMEPRAZOLE [Concomitant]
     Indication: ULCER
     Route: 048

REACTIONS (4)
  - BACK PAIN [None]
  - DRUG WITHDRAWAL SYNDROME [None]
  - INFLUENZA LIKE ILLNESS [None]
  - SLEEP TERROR [None]
